FAERS Safety Report 18466401 (Version 1)
Quarter: 2020Q4

REPORT INFORMATION
  Report Type: Spontaneous
  Country: GB (occurrence: GB)
  Receive Date: 20201105
  Receipt Date: 20201105
  Transmission Date: 20210114
  Serious: Yes (Other)
  Sender: FDA-Public Use
  Company Number: GB-ALKEM LABORATORIES LIMITED-GB-ALKEM-2020-07794

PATIENT
  Sex: Female

DRUGS (3)
  1. CINACALCET. [Suspect]
     Active Substance: CINACALCET
     Dosage: 90 MILLIGRAM, QD, (EVERY 1 DAY)
     Route: 065
  2. CINACALCET. [Suspect]
     Active Substance: CINACALCET
     Indication: FAMILIAL HYPOCALCIURIC HYPERCALCAEMIA
     Dosage: 30 MILLIGRAM, QD, (EVERY 1 DAY)
     Route: 065
  3. CINACALCET. [Suspect]
     Active Substance: CINACALCET
     Dosage: 60 MILLIGRAM, QD, (EVERY 1 DAY)
     Route: 065

REACTIONS (3)
  - Off label use [Unknown]
  - Pancreatitis relapsing [Recovered/Resolved]
  - Therapeutic response unexpected [Unknown]
